FAERS Safety Report 24909226 (Version 1)
Quarter: 2025Q1

REPORT INFORMATION
  Report Type: Report from Study
  Country: US (occurrence: US)
  Receive Date: 20250131
  Receipt Date: 20250131
  Transmission Date: 20250409
  Serious: No
  Sender: ACADIA PHARMACEUTICALS
  Company Number: US-ACADIA PHARMACEUTICALS INC.-ACA-2025-PIM-000718

PATIENT
  Sex: Female

DRUGS (5)
  1. NUPLAZID [Suspect]
     Active Substance: PIMAVANSERIN TARTRATE
     Indication: Parkinson^s disease
     Dosage: 34 MILLIGRAM, QOD
     Route: 048
  2. SINEMET [Concomitant]
     Active Substance: CARBIDOPA\LEVODOPA
  3. MODAFINIL [Concomitant]
     Active Substance: MODAFINIL
  4. RIVASTIGMINE [Concomitant]
     Active Substance: RIVASTIGMINE
  5. AMANTADINE [Concomitant]
     Active Substance: AMANTADINE

REACTIONS (1)
  - Inappropriate schedule of product administration [Not Recovered/Not Resolved]
